FAERS Safety Report 22185157 (Version 1)
Quarter: 2023Q2

REPORT INFORMATION
  Report Type: Spontaneous
  Country: JP (occurrence: JP)
  Receive Date: 20230407
  Receipt Date: 20230407
  Transmission Date: 20230721
  Serious: Yes (Hospitalization, Other)
  Sender: FDA-Public Use
  Company Number: JP-BRISTOL-MYERS SQUIBB COMPANY-2022-137196

PATIENT
  Age: 76 Year
  Sex: Male
  Weight: 54.8 kg

DRUGS (14)
  1. REVLIMID [Suspect]
     Active Substance: LENALIDOMIDE
     Indication: Follicular lymphoma
     Route: 048
     Dates: start: 20220609, end: 20220629
  2. REVLIMID [Suspect]
     Active Substance: LENALIDOMIDE
     Indication: Plasma cell myeloma
     Route: 048
     Dates: start: 20220715, end: 20220804
  3. REVLIMID [Suspect]
     Active Substance: LENALIDOMIDE
     Route: 048
     Dates: start: 20220816, end: 20220905
  4. REVLIMID [Suspect]
     Active Substance: LENALIDOMIDE
     Route: 048
     Dates: start: 20220909, end: 20220929
  5. REVLIMID [Suspect]
     Active Substance: LENALIDOMIDE
     Route: 048
     Dates: start: 20221007, end: 20221027
  6. REVLIMID [Suspect]
     Active Substance: LENALIDOMIDE
     Route: 048
     Dates: start: 20221104, end: 20221124
  7. RITUXIMAB [Suspect]
     Active Substance: RITUXIMAB
     Indication: Follicular lymphoma
     Dates: start: 20220616, end: 20220616
  8. RITUXIMAB [Suspect]
     Active Substance: RITUXIMAB
     Indication: Plasma cell myeloma
     Dates: start: 20220623, end: 20220623
  9. RITUXIMAB [Suspect]
     Active Substance: RITUXIMAB
     Dates: start: 20220701, end: 20220701
  10. RITUXIMAB [Suspect]
     Active Substance: RITUXIMAB
     Dates: start: 20220715, end: 20220715
  11. RITUXIMAB [Suspect]
     Active Substance: RITUXIMAB
     Dates: start: 20220812, end: 20220812
  12. RITUXIMAB [Suspect]
     Active Substance: RITUXIMAB
     Dates: start: 20220909, end: 20220909
  13. RITUXIMAB [Suspect]
     Active Substance: RITUXIMAB
     Dates: start: 20221007, end: 20221007
  14. RITUXIMAB [Suspect]
     Active Substance: RITUXIMAB
     Dates: start: 20220609, end: 20220609

REACTIONS (2)
  - Spinal column injury [Recovering/Resolving]
  - Rash [Recovering/Resolving]

NARRATIVE: CASE EVENT DATE: 20220611
